FAERS Safety Report 5030725-9 (Version None)
Quarter: 2006Q2

REPORT INFORMATION
  Report Type: 
  Country: None (occurrence: None)
  Receive Date: 20060615
  Receipt Date: 20060606
  Transmission Date: 20061013
  Serious: Yes (Hospitalization)
  Sender: FDA-Public Use
  Company Number: 2006-143532-NL

PATIENT
  Age: 25 Year
  Sex: Female

DRUGS (5)
  1. PUREGON [Suspect]
     Indication: INFERTILITY
  2. BROMOCRIPTINE MESYLATE [Concomitant]
  3. PRENATAL VITAMINS [Concomitant]
  4. VAGINAL PROGESTERONE [Concomitant]
  5. ZOFRAN [Concomitant]

REACTIONS (6)
  - ALANINE AMINOTRANSFERASE INCREASED [None]
  - ASCITES [None]
  - ASPARTATE AMINOTRANSFERASE INCREASED [None]
  - MULTIGRAVIDA [None]
  - OVARIAN CYST [None]
  - OVARIAN HYPERSTIMULATION SYNDROME [None]
